FAERS Safety Report 4322973-8 (Version None)
Quarter: 2004Q1

REPORT INFORMATION
  Report Type: 
  Country: None (occurrence: None)
  Receive Date: 20040324
  Receipt Date: 20040324
  Transmission Date: 20041129
  Serious: Yes (Death)
  Sender: FDA-Public Use
  Company Number: None

PATIENT
  Age: 45 Year
  Sex: Male
  Weight: 68.0396 kg

DRUGS (2)
  1. PAXIL [Suspect]
     Indication: DEPRESSION
     Dates: start: 20011120, end: 20021207
  2. WELLBUTRIN [Suspect]

REACTIONS (2)
  - GUN SHOT WOUND [None]
  - INTENTIONAL SELF-INJURY [None]
